FAERS Safety Report 6145356-7 (Version None)
Quarter: 2009Q2

REPORT INFORMATION
  Report Type: 
  Country: None (occurrence: None)
  Receive Date: 20090402
  Receipt Date: 20090320
  Transmission Date: 20091009
  Serious: Yes (Hospitalization)
  Sender: FDA-Public Use
  Company Number: 430064J08USA

PATIENT
  Age: 45 Year
  Sex: Male
  Weight: 86 kg

DRUGS (3)
  1. NOVANTRONE [Suspect]
     Indication: MULTIPLE SCLEROSIS
     Dosage: 20 NOT REPORTED, 1 IN 3 MONTHS, INTRAVENOUS
     Route: 042
     Dates: start: 20071113, end: 20080513
  2. CALCIUM (CALCIUM-S-ANDOZ) [Concomitant]
  3. SOLU-MEDROL [Concomitant]

REACTIONS (1)
  - THYROID CANCER [None]
